FAERS Safety Report 7105091-5 (Version None)
Quarter: 2010Q4

REPORT INFORMATION
  Report Type: 
  Country: None (occurrence: None)
  Receive Date: 20101109
  Receipt Date: 20101027
  Transmission Date: 20110411
  Serious: Yes (Hospitalization)
  Sender: FDA-Public Use
  Company Number: 021245

PATIENT
  Sex: Female

DRUGS (8)
  1. VIMPAT [Suspect]
     Indication: EPILEPSY
     Dosage: (100 MG ORAL), (200 MG ORAL)
     Route: 048
     Dates: start: 20100701, end: 20100712
  2. VIMPAT [Suspect]
     Indication: EPILEPSY
     Dosage: (100 MG ORAL), (200 MG ORAL)
     Route: 048
     Dates: start: 20100713, end: 20100922
  3. LAMICTAL [Concomitant]
  4. GAVISCON /00237601/ [Concomitant]
  5. OMEPRAZOLE [Concomitant]
  6. AMLOR [Concomitant]
  7. SODIUM ALGINATE [Concomitant]
  8. SODIUM BICARBONATE [Concomitant]

REACTIONS (3)
  - CONFUSIONAL STATE [None]
  - GENERAL PHYSICAL CONDITION ABNORMAL [None]
  - PERSECUTORY DELUSION [None]
